FAERS Safety Report 7459957-7 (Version None)
Quarter: 2011Q2

REPORT INFORMATION
  Report Type: 
  Country: None (occurrence: None)
  Receive Date: 20110427
  Receipt Date: 20110415
  Transmission Date: 20111010
  Serious: Yes (Hospitalization)
  Sender: FDA-Public Use
  Company Number: 2011CP000061

PATIENT
  Age: 50 Year
  Sex: Female

DRUGS (5)
  1. FLOXACILLIN SODIUM [Suspect]
     Dosage: 8 GM, IV
     Route: 042
  2. CARBAMAZEPINE [Suspect]
     Indication: EPILEPSY
  3. PHENOBARBITAL (PHENOBARBITAL) [Suspect]
     Indication: EPILEPSY
  4. PHENYTOIN [Suspect]
     Indication: EPILEPSY
  5. ACETAMINOPHEN [Suspect]
     Dosage: 4 GM, 1 DAY, IV
     Route: 042

REACTIONS (4)
  - DRUG INTERACTION [None]
  - METABOLIC ACIDOSIS [None]
  - HYPOTENSION [None]
  - DEPRESSED LEVEL OF CONSCIOUSNESS [None]
